FAERS Safety Report 14701240 (Version 1)
Quarter: 2018Q1

REPORT INFORMATION
  Report Type: Spontaneous
  Country: US (occurrence: US)
  Receive Date: 20180328
  Receipt Date: 20180328
  Transmission Date: 20180509
  Serious: No
  Sender: FDA-Public Use
  Company Number: None

PATIENT
  Age: 56 Year
  Sex: Male

DRUGS (1)
  1. HUMIRA [Suspect]
     Active Substance: ADALIMUMAB
     Indication: CROHN^S DISEASE
     Dosage: 160 MG ON DAY 1, 2 PENS ON DAY 15, EVERY 2 WEEKS STARTER, SQ
     Route: 058
     Dates: start: 20180215

REACTIONS (5)
  - Herpes zoster [None]
  - Burning sensation [None]
  - Skin lesion [None]
  - Paraesthesia [None]
  - Scab [None]

NARRATIVE: CASE EVENT DATE: 20180323
